FAERS Safety Report 14046449 (Version 1)
Quarter: 2017Q4

REPORT INFORMATION
  Report Type: Spontaneous
  Country: US (occurrence: None)
  Receive Date: 20171005
  Receipt Date: 20171005
  Transmission Date: 20180321
  Serious: Yes (Hospitalization)
  Sender: FDA-Public Use
  Company Number: None

PATIENT
  Age: 66 Year
  Sex: Male
  Weight: 88 kg

DRUGS (1)
  1. LENALIDOMIDE (CC-5013) [Suspect]
     Active Substance: LENALIDOMIDE
     Dates: end: 20170909

REACTIONS (4)
  - Nausea [None]
  - Vomiting [None]
  - Colostomy closure [None]
  - Therapy cessation [None]

NARRATIVE: CASE EVENT DATE: 20170923
